FAERS Safety Report 17555803 (Version 1)
Quarter: 2020Q1

REPORT INFORMATION
  Report Type: Spontaneous
  Country: IT (occurrence: IT)
  Receive Date: 20200318
  Receipt Date: 20200318
  Transmission Date: 20200409
  Serious: Yes (Other)
  Sender: FDA-Public Use
  Company Number: IT-MYLANLABS-2020M1027221

PATIENT
  Age: 43 Year
  Sex: Female

DRUGS (14)
  1. RITUXIMAB. [Concomitant]
     Active Substance: RITUXIMAB
     Indication: SYSTEMIC LUPUS ERYTHEMATOSUS
     Dosage: UNK
  2. METHYLPREDNISOLONE. [Concomitant]
     Active Substance: METHYLPREDNISOLONE
     Indication: SYSTEMIC LUPUS ERYTHEMATOSUS
     Dosage: UNK (PULSES)
  3. TACROLIMUS. [Suspect]
     Active Substance: TACROLIMUS
     Indication: SYSTEMIC LUPUS ERYTHEMATOSUS
     Dosage: UNK UNK, QD
  4. PREDNISONE. [Suspect]
     Active Substance: PREDNISONE
     Dosage: UNK (25 MG QD, DOSE TAPERING)
     Dates: start: 201705, end: 201706
  5. PREDNISONE. [Suspect]
     Active Substance: PREDNISONE
     Dosage: (15 MG QD, DOSE TAPERING)
     Dates: start: 201706, end: 201707
  6. PREDNISONE. [Suspect]
     Active Substance: PREDNISONE
     Dosage: UNK UNK (12.5 MG QD, DOSE TAPERING)
     Dates: start: 201707, end: 201708
  7. PREDNISONE. [Suspect]
     Active Substance: PREDNISONE
     Dosage: UNK UNK (10 MG QD, DOSE TAPERING)
     Dates: start: 201708, end: 201709
  8. IMMUNOGLOBULIN I.V [Concomitant]
     Active Substance: HUMAN IMMUNOGLOBULIN G
     Indication: SYSTEMIC LUPUS ERYTHEMATOSUS
     Dosage: UNK
  9. PREDNISONE. [Suspect]
     Active Substance: PREDNISONE
     Indication: SYSTEMIC LUPUS ERYTHEMATOSUS
     Dosage: 25 MG, QD
     Dates: start: 201607, end: 201705
  10. PREDNISONE. [Suspect]
     Active Substance: PREDNISONE
     Dosage: (7.5 MG QD, DOSE TAPERING)
     Dates: start: 201709
  11. PREDNISONE. [Suspect]
     Active Substance: PREDNISONE
     Dosage: UNK (50 MG QD, TAPERING DOSE)
     Dates: start: 201606, end: 201607
  12. PREDNISONE. [Suspect]
     Active Substance: PREDNISONE
     Dosage: 15 MG, QD
  13. MYCOPHENOLATE MOFETIL. [Suspect]
     Active Substance: MYCOPHENOLATE MOFETIL
     Indication: SYSTEMIC LUPUS ERYTHEMATOSUS
     Dosage: UNK UNK, QD
  14. HYDROXYCHLOROQUINE SULFATE. [Suspect]
     Active Substance: HYDROXYCHLOROQUINE SULFATE
     Indication: SYSTEMIC LUPUS ERYTHEMATOSUS
     Dosage: 400 MG, QD

REACTIONS (4)
  - Arthralgia [Recovered/Resolved]
  - Pyrexia [Recovered/Resolved]
  - Systemic lupus erythematosus [Recovered/Resolved]
  - Drug ineffective [Unknown]

NARRATIVE: CASE EVENT DATE: 201606
